FAERS Safety Report 6533741-0 (Version None)
Quarter: 2010Q1

REPORT INFORMATION
  Report Type: 
  Country: None (occurrence: None)
  Receive Date: 20100111
  Receipt Date: 20090415
  Transmission Date: 20100710
  Serious: No
  Sender: FDA-Public Use
  Company Number: US-ABBOTT-09P-163-0568722-00

PATIENT
  Sex: Female
  Weight: 90.8 kg

DRUGS (2)
  1. VICODIN [Suspect]
     Indication: PAIN
  2. DECLINED LONG LIST [Concomitant]
     Indication: DRUG USE FOR UNKNOWN INDICATION

REACTIONS (3)
  - FOREIGN BODY [None]
  - ILL-DEFINED DISORDER [None]
  - PHARYNGEAL OEDEMA [None]
